FAERS Safety Report 5760346-1 (Version None)
Quarter: 2008Q2

REPORT INFORMATION
  Report Type: 
  Country: None (occurrence: None)
  Receive Date: 20080605
  Receipt Date: 20080603
  Transmission Date: 20081010
  Serious: Yes (Hospitalization)
  Sender: FDA-Public Use
  Company Number: CA-MERCK-0806CAN00026

PATIENT
  Age: 65 Year
  Sex: Female
  Weight: 115 kg

DRUGS (4)
  1. COZAAR [Suspect]
     Indication: ESSENTIAL HYPERTENSION
     Route: 048
     Dates: start: 20080509
  2. DYAZIDE [Concomitant]
     Route: 065
     Dates: start: 20060101, end: 20080509
  3. VENTOLIN [Concomitant]
     Route: 065
  4. ADVAIR DISKUS 100/50 [Concomitant]
     Route: 065

REACTIONS (1)
  - PNEUMONIA [None]
